FAERS Safety Report 8777122 (Version 2)
Quarter: 2012Q4

REPORT INFORMATION
  Report Type: Report from Study
  Country: JP (occurrence: JP)
  Receive Date: 20120911
  Receipt Date: 20121017
  Transmission Date: 20130627
  Serious: No
  Sender: FDA-Public Use
  Company Number: JP-009507513-2012SP032453

PATIENT

DRUGS (19)
  1. PEGINTRON [Suspect]
     Indication: HEPATITIS C
     Dosage: 1.5 ?g/kg, Unknown
     Route: 058
  2. REBETOL [Suspect]
     Indication: HEPATITIS C
     Dosage: 1000 mg, QD
     Route: 048
     Dates: start: 20120225, end: 20120316
  3. REBETOL [Suspect]
     Dosage: 600 mg, QD
     Route: 048
     Dates: start: 20120317
  4. REBETOL [Suspect]
     Dosage: 500 mg, QD
     Route: 048
     Dates: start: 20120407, end: 20120420
  5. REBETOL [Suspect]
     Dosage: 600 mg, QD
     Route: 048
     Dates: start: 20120421
  6. REBETOL [Suspect]
     Dosage: 800 mg, qd
     Route: 048
     Dates: end: 20120601
  7. REBETOL [Suspect]
     Dosage: 600 mg, qd
     Route: 048
     Dates: start: 20120602, end: 20120604
  8. REBETOL [Suspect]
     Dosage: 400 mg, qd
     Route: 048
     Dates: start: 20120616, end: 20120629
  9. REBETOL [Suspect]
     Dosage: 600 mg, qd
     Dates: start: 20120630
  10. REBETOL [Suspect]
     Dosage: UNK
  11. TELAVIC [Suspect]
     Indication: HEPATITIS C
     Dosage: 2000 mg, QD
     Route: 048
     Dates: start: 20120225
  12. GASMOTIN [Concomitant]
     Indication: DECREASED APPETITE
     Dosage: 15 mg, QD
     Route: 048
     Dates: start: 20120227
  13. GASMOTIN [Concomitant]
     Dosage: 10 UNK, UNK
  14. ALLOPURINOL [Concomitant]
     Indication: HYPERURICAEMIA
     Dosage: 200 mg, QD
     Route: 048
     Dates: start: 20120227
  15. PARIET [Concomitant]
     Dosage: 10 mg, QD
     Route: 048
  16. CONIEL [Concomitant]
     Indication: HYPERTENSION
     Dosage: 4 mg, qd
     Route: 048
  17. PREDONINE [Concomitant]
     Dosage: 30 mg, qd
  18. DERMOVATE [Concomitant]
     Indication: RASH
     Route: 061
  19. ALLELOCK [Concomitant]
     Dosage: 10 mg, qd

REACTIONS (1)
  - Rash [Recovered/Resolved]
